FAERS Safety Report 20382708 (Version 1)
Quarter: 2022Q1

REPORT INFORMATION
  Report Type: Spontaneous
  Country: US (occurrence: None)
  Receive Date: 20220127
  Receipt Date: 20220127
  Transmission Date: 20220424
  Serious: Yes (Hospitalization)
  Sender: FDA-Public Use
  Company Number: None

PATIENT
  Age: 34 Year
  Sex: Male
  Weight: 78.47 kg

DRUGS (1)
  1. LISINOPRIL [Suspect]
     Active Substance: LISINOPRIL
     Dosage: 5 MG EVERY DAY PO?
     Route: 048
     Dates: start: 20210628, end: 20211021

REACTIONS (2)
  - Angioedema [None]
  - Cough [None]

NARRATIVE: CASE EVENT DATE: 20211020
